FAERS Safety Report 12487803 (Version 3)
Quarter: 2016Q3

REPORT INFORMATION
  Report Type: Spontaneous
  Country: US (occurrence: US)
  Receive Date: 20160622
  Receipt Date: 20160802
  Transmission Date: 20161109
  Serious: Yes (Other)
  Sender: FDA-Public Use
  Company Number: PHEH2016US015147

PATIENT
  Sex: Female
  Weight: 145 kg

DRUGS (3)
  1. VIVELLE-DOT [Suspect]
     Active Substance: ESTRADIOL
     Indication: HORMONE REPLACEMENT THERAPY
     Dosage: 0.1 MG, UNK
     Route: 062
     Dates: start: 1997
  2. COPAXONE [Suspect]
     Active Substance: GLATIRAMER ACETATE
     Indication: PRODUCT USED FOR UNKNOWN INDICATION
     Route: 065
  3. VIVELLE-DOT [Suspect]
     Active Substance: ESTRADIOL
     Dosage: 0.1 MG, QOD
     Route: 062

REACTIONS (10)
  - Drug ineffective [Unknown]
  - Multiple sclerosis relapse [Unknown]
  - Haemorrhage [Unknown]
  - Visual impairment [Unknown]
  - Bladder disorder [Unknown]
  - Dyspnoea [Unknown]
  - Choking [Unknown]
  - Asthma [Unknown]
  - Abdominal distension [Unknown]
  - Migraine [Unknown]

NARRATIVE: CASE EVENT DATE: 1998
